FAERS Safety Report 14758186 (Version 1)
Quarter: 2018Q2

REPORT INFORMATION
  Report Type: Spontaneous
  Country: NL (occurrence: NL)
  Receive Date: 20180413
  Receipt Date: 20180413
  Transmission Date: 20180711
  Serious: Yes (Death, Other)
  Sender: FDA-Public Use
  Company Number: PHHY2018NL020754

PATIENT
  Age: 71 Year
  Sex: Male

DRUGS (17)
  1. FLUCONAZOLE. [Suspect]
     Active Substance: FLUCONAZOLE
     Indication: CANDIDA INFECTION
     Dosage: 200 MG, QD (FOR TWO WEEKS)
     Route: 065
  2. INTERFERON GAMMA NOS [Suspect]
     Active Substance: INTERFERON GAMMA
     Indication: CANDIDA INFECTION
     Dosage: 100 MG, Q3W (FOR ONE MONTH)
     Route: 058
  3. CASPOFUNGIN [Suspect]
     Active Substance: CASPOFUNGIN
     Indication: CANDIDA INFECTION
     Dosage: 70 MG, QD
     Route: 065
  4. AMPHOTERICIN B. [Suspect]
     Active Substance: AMPHOTERICIN B
     Indication: CANDIDA INFECTION
     Dosage: 400 MG, UNK (SIX TIMES FOR TWO WEEKS)
     Route: 048
  5. AMPHOTERICIN B. [Suspect]
     Active Substance: AMPHOTERICIN B
     Indication: OESOPHAGEAL CANDIDIASIS
  6. FILGRASTIM [Suspect]
     Active Substance: FILGRASTIM
     Indication: OESOPHAGEAL CANDIDIASIS
     Dosage: 300 MUG, 3 TIMES/WK (FOR ONE MONTH)
     Route: 058
  7. FLUCONAZOLE. [Suspect]
     Active Substance: FLUCONAZOLE
     Indication: OESOPHAGEAL CANDIDIASIS
     Dosage: 150 MG, QD
     Route: 065
  8. FLUCYTOSINE. [Suspect]
     Active Substance: FLUCYTOSINE
     Indication: CANDIDA INFECTION
  9. INTERFERON GAMMA NOS [Suspect]
     Active Substance: INTERFERON GAMMA
     Indication: OESOPHAGEAL CANDIDIASIS
  10. FILGRASTIM [Suspect]
     Active Substance: FILGRASTIM
     Indication: CANDIDA INFECTION
     Dosage: 300 MG, Q3W (FOR ONE MONTH)
     Route: 058
  11. FLUCONAZOLE. [Suspect]
     Active Substance: FLUCONAZOLE
     Dosage: 800 MG, QD
     Route: 065
  12. FLUCYTOSINE. [Suspect]
     Active Substance: FLUCYTOSINE
     Indication: OESOPHAGEAL CANDIDIASIS
  13. OMEPRAZOLE. [Concomitant]
     Active Substance: OMEPRAZOLE
     Indication: CHEST PAIN
     Dosage: 40 MG, UNK
     Route: 065
  14. FLUCYTOSINE. [Suspect]
     Active Substance: FLUCYTOSINE
     Dosage: 2000 MG, Q6H
     Route: 042
  15. FLUCYTOSINE. [Suspect]
     Active Substance: FLUCYTOSINE
     Indication: OESOPHAGEAL CANDIDIASIS
  16. CASPOFUNGIN [Suspect]
     Active Substance: CASPOFUNGIN
     Indication: OESOPHAGEAL CANDIDIASIS
  17. INTERFERON GAMMA NOS [Suspect]
     Active Substance: INTERFERON GAMMA
     Indication: IMMUNE ENHANCEMENT THERAPY

REACTIONS (9)
  - Condition aggravated [Fatal]
  - Weight decreased [Fatal]
  - Drug resistance [Unknown]
  - Off label use [Fatal]
  - Respiratory failure [Fatal]
  - Product use in unapproved indication [Unknown]
  - Candida infection [Fatal]
  - Oesophageal candidiasis [Fatal]
  - Squamous cell carcinoma [Fatal]
